FAERS Safety Report 11183191 (Version 2)
Quarter: 2015Q2

REPORT INFORMATION
  Report Type: Report from Study
  Country: DE (occurrence: PL)
  Receive Date: 20150611
  Receipt Date: 20150623
  Transmission Date: 20150821
  Serious: Yes (Hospitalization)
  Sender: FDA-Public Use
  Company Number: DE-ACTELION-A-US2015-119459

PATIENT
  Age: 1 Month

DRUGS (2)
  1. VENTAVIS [Suspect]
     Active Substance: ILOPROST
     Indication: EXPOSURE DURING PREGNANCY
     Dosage: 5 MCG, 8 TIMES DAILY
     Route: 064
     Dates: start: 20150130, end: 20150504
  2. REVATIO [Suspect]
     Active Substance: SILDENAFIL CITRATE
     Indication: EXPOSURE DURING PREGNANCY
     Dosage: 20 MG, TID
     Route: 064
     Dates: start: 20150129, end: 20150504

REACTIONS (3)
  - Premature baby [Unknown]
  - Live birth [Unknown]
  - Exposure during pregnancy [Unknown]
